FAERS Safety Report 25285703 (Version 1)
Quarter: 2025Q2

REPORT INFORMATION
  Report Type: Spontaneous
  Country: US (occurrence: US)
  Receive Date: 20250509
  Receipt Date: 20250509
  Transmission Date: 20250716
  Serious: Yes (Hospitalization)
  Sender: BOEHRINGER INGELHEIM
  Company Number: US-BoehringerIngelheim-2025-BI-026568

PATIENT
  Sex: Male
  Weight: 99.80 kg

DRUGS (12)
  1. NINTEDANIB [Suspect]
     Active Substance: NINTEDANIB
     Indication: Pulmonary fibrosis
     Dates: start: 202212
  2. NERANDOMILAST [Concomitant]
     Active Substance: NERANDOMILAST
     Indication: Pulmonary fibrosis
  3. CRESTOR [Concomitant]
     Active Substance: ROSUVASTATIN CALCIUM
     Indication: Hyperlipidaemia
  4. ASPIRIN [Concomitant]
     Active Substance: ASPIRIN
     Indication: Arteriosclerosis coronary artery
  5. HYDROCHLOROTHIAZIDE [Concomitant]
     Active Substance: HYDROCHLOROTHIAZIDE
     Indication: Hypertension
  6. 3 HYDROCORTISONE CREAM [Concomitant]
     Indication: Dry skin
  7. IBUPROFEN [Concomitant]
     Active Substance: IBUPROFEN
     Indication: Arthritis
  8. MEPRON [Concomitant]
     Active Substance: ATOVAQUONE
     Indication: Dyspnoea
  9. ALLEGRA [Concomitant]
     Active Substance: FEXOFENADINE HYDROCHLORIDE
     Indication: Rhinitis allergic
  10. PREDNISONE [Concomitant]
     Active Substance: PREDNISONE
     Indication: Dyspnoea
     Dates: start: 20250306
  11. PREDNISONE [Concomitant]
     Active Substance: PREDNISONE
     Dates: start: 20250220, end: 20250305
  12. Promethazine-DM [Concomitant]
     Indication: Cough

REACTIONS (1)
  - Diarrhoea [Recovered/Resolved]
